FAERS Safety Report 16466155 (Version 2)
Quarter: 2019Q3

REPORT INFORMATION
  Report Type: Other
  Country: US (occurrence: US)
  Receive Date: 20190621
  Receipt Date: 20190924
  Transmission Date: 20191004
  Serious: No
  Sender: FDA-Public Use
  Company Number: US-ACORDA-ACO_159251_2019

PATIENT
  Age: 76 Year
  Sex: Male

DRUGS (2)
  1. INBRIJA [Suspect]
     Active Substance: LEVODOPA
     Indication: PARKINSON^S DISEASE
     Dosage: 42 MILLIGRAM, PRN (INHALE CONTENTS OF TWO CAPSULES UP TO FIVE TIMES PER DAY AS NEEDED)
     Dates: start: 20190506, end: 20190604
  2. INBRIJA [Suspect]
     Active Substance: LEVODOPA
     Indication: ON AND OFF PHENOMENON
     Dosage: 84 MILLIGRAM, PRN
     Dates: start: 20190610, end: 20190621

REACTIONS (4)
  - Condition aggravated [Recovered/Resolved]
  - Akinesia [Unknown]
  - Insomnia [Recovered/Resolved]
  - Drug ineffective [Unknown]

NARRATIVE: CASE EVENT DATE: 20190511
